FAERS Safety Report 6621752-6 (Version None)
Quarter: 2010Q1

REPORT INFORMATION
  Report Type: 
  Country: None (occurrence: None)
  Receive Date: 20100223
  Receipt Date: 20100104
  Transmission Date: 20100710
  Serious: No
  Sender: FDA-Public Use
  Company Number: 003981

PATIENT
  Sex: Female
  Weight: 88.9 kg

DRUGS (4)
  1. CIMZIA [Suspect]
     Indication: CROHN'S DISEASE
     Dosage: 400 MG MONTHLY SUBCUTANEOUS
     Route: 058
     Dates: start: 20091207
  2. ENTOCORT EC [Concomitant]
  3. LOMOTIL [Concomitant]
  4. VICODIN [Concomitant]

REACTIONS (2)
  - INJECTION SITE MASS [None]
  - INJECTION SITE PRURITUS [None]
